FAERS Safety Report 7343224-6 (Version None)
Quarter: 2011Q1

REPORT INFORMATION
  Report Type: 
  Country: None (occurrence: None)
  Receive Date: 20110310
  Receipt Date: 20110303
  Transmission Date: 20110831
  Serious: Yes (Other)
  Sender: FDA-Public Use
  Company Number: US-JNJFOC-20100502047

PATIENT
  Sex: Female

DRUGS (5)
  1. LEVAQUIN [Suspect]
     Indication: BRONCHITIS
     Route: 048
  2. LEVAQUIN [Suspect]
     Indication: SINUSITIS
     Route: 048
  3. LEVAQUIN [Suspect]
     Indication: RESPIRATORY TRACT INFECTION
     Route: 048
  4. LEVAQUIN [Suspect]
     Indication: CELLULITIS
     Route: 048
  5. PREDNISONE [Suspect]
     Indication: INFLAMMATION
     Route: 065

REACTIONS (6)
  - TRIGGER FINGER [None]
  - BURSITIS [None]
  - TENDON RUPTURE [None]
  - CARPAL TUNNEL SYNDROME [None]
  - JOINT INJURY [None]
  - ROTATOR CUFF SYNDROME [None]
